FAERS Safety Report 24051284 (Version 1)
Quarter: 2024Q3

REPORT INFORMATION
  Report Type: Spontaneous
  Country: NG (occurrence: NG)
  Receive Date: 20240704
  Receipt Date: 20240704
  Transmission Date: 20241016
  Serious: Yes (Death, Other)
  Sender: SANOFI AVENTIS
  Company Number: NG-SA-SAC20240703000472

PATIENT
  Age: 61 Year
  Sex: Male

DRUGS (1)
  1. LANTUS [Suspect]
     Active Substance: INSULIN GLARGINE
     Indication: Diabetes mellitus
     Dosage: 22 IU, QD
     Route: 058
     Dates: start: 20240303, end: 20240524

REACTIONS (1)
  - Diabetes mellitus inadequate control [Fatal]

NARRATIVE: CASE EVENT DATE: 20240101
